FAERS Safety Report 18821505 (Version 1)
Quarter: 2021Q1

REPORT INFORMATION
  Report Type: Spontaneous
  Country: US (occurrence: US)
  Receive Date: 20210201
  Receipt Date: 20210201
  Transmission Date: 20210419
  Serious: No
  Sender: FDA-Public Use
  Company Number: US-INTERSECT ENT, INC.-2106132

PATIENT
  Age: 73 Year
  Sex: Male

DRUGS (1)
  1. SINUVA [Suspect]
     Active Substance: MOMETASONE FUROATE
     Route: 006
     Dates: start: 20190916, end: 20191209

REACTIONS (1)
  - Eczema [None]

NARRATIVE: CASE EVENT DATE: 20191209
